FAERS Safety Report 4996430-X (Version None)
Quarter: 2006Q2

REPORT INFORMATION
  Report Type: 
  Country: None (occurrence: None)
  Receive Date: 20060505
  Receipt Date: 20060425
  Transmission Date: 20061013
  Serious: Yes (Hospitalization)
  Sender: FDA-Public Use
  Company Number: 2006057252

PATIENT
  Age: 70 Year
  Sex: Female

DRUGS (8)
  1. AMLODIPINE [Suspect]
     Indication: ESSENTIAL HYPERTENSION
     Dosage: 5 MG (5 MG, 1 IN 1 D), ORAL
     Route: 048
     Dates: end: 20060302
  2. PHYSIOTENS (MOXONIDINE) [Concomitant]
     Indication: ESSENTIAL HYPERTENSION
     Dosage: 1DF (EVERY DAY), ORAL
     Route: 048
     Dates: end: 20060302
  3. PROPRANOLOL [Suspect]
     Indication: ESSENTIAL HYPERTENSION
     Dosage: 160 MG (160 MG, 1 IN 1 D), ORAL
     Route: 048
     Dates: end: 20060302
  4. HYZAAR [Suspect]
     Indication: ESSENTIAL HYPERTENSION
     Dosage: 1DF (EVERY DAY), ORAL
     Route: 048
     Dates: end: 20060302
  5. PRAZEPAM [Concomitant]
  6. EFFEXOR [Concomitant]
  7. ZOLPIDEM TARTRATE [Concomitant]
  8. ZYPREXA [Concomitant]

REACTIONS (3)
  - DRUG INTERACTION [None]
  - HYPOTENSION [None]
  - PSYCHOMOTOR RETARDATION [None]
